FAERS Safety Report 15819374 (Version 1)
Quarter: 2019Q1

REPORT INFORMATION
  Report Type: Spontaneous
  Country: US (occurrence: US)
  Receive Date: 20190114
  Receipt Date: 20190114
  Transmission Date: 20190417
  Serious: No
  Sender: FDA-Public Use
  Company Number: US-TEVA-2018-US-943464

PATIENT
  Age: 66 Year
  Sex: Male

DRUGS (8)
  1. FLUOROURACIL. [Suspect]
     Active Substance: FLUOROURACIL
     Indication: ADENOCARCINOMA OF COLON
     Dosage: AS A PART OF BEVACIZUMAB- FOLFOX REGIMAN; PLANNED FOR EVERY 2 WEEKS FOR 6 SIX CYCLES
     Route: 065
  2. BEVACIZUMAB. [Suspect]
     Active Substance: BEVACIZUMAB
     Indication: ADENOCARCINOMA OF COLON
     Dosage: PLANNED FOR EVERY 2 WEEKS FOR 6 SIX CYCLES
     Route: 065
  3. FLUOROURACIL. [Suspect]
     Active Substance: FLUOROURACIL
     Indication: ADENOCARCINOMA OF COLON
     Dosage: AS A PART OF CETUXIMAB-FOLFIRI REGIMEN
     Route: 065
  4. FOLINIC ACID [Suspect]
     Active Substance: LEUCOVORIN
     Indication: ADENOCARCINOMA OF COLON
     Dosage: AS A PART OF CETUXIMAB-FOLFIRI REGIMEN
     Route: 065
  5. IRINOTECAN [Suspect]
     Active Substance: IRINOTECAN
     Indication: ADENOCARCINOMA OF COLON
     Dosage: AS A PART OF FOLFIRI REGIMEN
     Route: 065
  6. OXALIPLATIN INJECTION 50MG/10 ML+100MG/20ML [Suspect]
     Active Substance: OXALIPLATIN
     Indication: ADENOCARCINOMA OF COLON
     Dosage: PLANNED FOR EVERY 2 WEEKS FOR 6 SIX CYCLES
     Route: 065
  7. CETUXIMAB. [Suspect]
     Active Substance: CETUXIMAB
     Indication: ADENOCARCINOMA OF COLON
     Route: 065
  8. FOLINIC ACID [Suspect]
     Active Substance: LEUCOVORIN
     Indication: ADENOCARCINOMA OF COLON
     Dosage: AS A PART OF BEVACIZUMAB- FOLFOX REGIMAN; PLANNED FOR EVERY 2 WEEKS FOR 6 SIX CYCLES
     Route: 065

REACTIONS (6)
  - Fatigue [Unknown]
  - Rash pustular [Unknown]
  - Alopecia [Unknown]
  - Peripheral sensory neuropathy [Unknown]
  - Conjunctivitis [Unknown]
  - Hypomagnesaemia [Unknown]
